FAERS Safety Report 8228294-5 (Version None)
Quarter: 2012Q1

REPORT INFORMATION
  Report Type: 
  Country: None (occurrence: None)
  Receive Date: 20120322
  Receipt Date: 20111006
  Transmission Date: 20120608
  Serious: No
  Sender: FDA-Public Use
  Company Number: US-BRISTOL-MYERS SQUIBB COMPANY-16140030

PATIENT
  Age: 76 Year
  Sex: Female
  Weight: 73 kg

DRUGS (4)
  1. IRINOTECAN HCL [Suspect]
  2. FLUOROURACIL [Suspect]
  3. ERBITUX [Suspect]
     Dates: start: 20110101
  4. LEUCOVORIN CALCIUM [Suspect]

REACTIONS (1)
  - HYPOMAGNESAEMIA [None]
